FAERS Safety Report 6401004-X (Version None)
Quarter: 2009Q4

REPORT INFORMATION
  Report Type: 
  Country: None (occurrence: None)
  Receive Date: 20091015
  Receipt Date: 20070314
  Transmission Date: 20100525
  Serious: Yes (Disabling)
  Sender: FDA-Public Use
  Company Number: US-ASTRAZENECA-2006UW07719

PATIENT
  Sex: Male
  Weight: 127 kg

DRUGS (11)
  1. SEROQUEL [Suspect]
     Dosage: STRENGTH: 100 MG, DOSE: 200 MG TO 300 MG DAILY
     Route: 048
     Dates: start: 20031224
  2. SEROQUEL [Suspect]
     Route: 048
  3. WELLBUTRIN [Concomitant]
     Dosage: STRENGTH: 150 MG, DOSE: 200 MG TO 300 MG
     Dates: start: 20031224
  4. AMLODIPINE [Concomitant]
     Dates: start: 20031224
  5. DIGOXIN [Concomitant]
     Dosage: STRENGTH: 0.125 MG, 0.25 MG. DOSE: 0.125 MG TO 0.25 MG DAILY
     Dates: start: 20031224
  6. COREG [Concomitant]
     Dosage: STRENGTH: 6.25 MG, 12.5 MG. DOSE: 75 MG TO 100 MG DAILY
     Dates: start: 20031224
  7. PAROXETINE HCL [Concomitant]
     Dosage: STRENGTH: 25 MG DOSE: 25 MG TO 50 MG DAILY
     Dates: start: 20031224
  8. DOXAZOSIN MESYLATE [Concomitant]
     Dosage: STRENGTH: 2 MG, 25 MG. DOSE: 2 MG DAILY
     Dates: start: 20031224
  9. LOTENSIN [Concomitant]
     Dates: start: 20031224
  10. GLIPIZIDE [Concomitant]
     Indication: DIABETES MELLITUS
     Dates: start: 20060118
  11. SPIRONOLACTONE [Concomitant]
     Dates: start: 20031224

REACTIONS (1)
  - ILL-DEFINED DISORDER [None]
